FAERS Safety Report 6139153-6 (Version None)
Quarter: 2009Q2

REPORT INFORMATION
  Report Type: 
  Country: None (occurrence: None)
  Receive Date: 20090401
  Receipt Date: 20090324
  Transmission Date: 20091009
  Serious: Yes (Other)
  Sender: FDA-Public Use
  Company Number: BR-PFIZER INC-2009172060

PATIENT

DRUGS (3)
  1. SUNITINIB MALATE [Suspect]
     Indication: RENAL CANCER
     Dosage: 50 MG, 1X/DAY
     Route: 048
     Dates: start: 20090117
  2. SYNTHROID [Concomitant]
     Indication: HYPOTHYROIDISM
     Dosage: 50 MCG
     Route: 048
  3. HYGROTON [Concomitant]
     Indication: HYPERTENSION
     Dosage: 12.5 MG, UNK
     Route: 048

REACTIONS (13)
  - ASTHENIA [None]
  - CHROMATURIA [None]
  - DIARRHOEA [None]
  - DYSGEUSIA [None]
  - FAECES DISCOLOURED [None]
  - HYPERTENSION [None]
  - HYPOTENSION [None]
  - HYPOTHYROIDISM [None]
  - LEUKOPENIA [None]
  - MUCOSAL INFLAMMATION [None]
  - PYREXIA [None]
  - THROMBOCYTOPENIA [None]
  - YELLOW SKIN [None]
